FAERS Safety Report 15998628 (Version 1)
Quarter: 2019Q1

REPORT INFORMATION
  Report Type: Spontaneous
  Country: ES (occurrence: ES)
  Receive Date: 20190223
  Receipt Date: 20190223
  Transmission Date: 20190418
  Serious: Yes (Disabling, Other)
  Sender: FDA-Public Use
  Company Number: ES-ACCORD-108966

PATIENT
  Age: 83 Year
  Sex: Female

DRUGS (5)
  1. ORFIDAL [Concomitant]
     Active Substance: LORAZEPAM
     Dosage: OCASIONAL
     Route: 048
  2. ALLOPURINOL. [Suspect]
     Active Substance: ALLOPURINOL
     Indication: BLOOD URIC ACID INCREASED
     Dosage: ALLOPURINOL 300 (1-0-0)
     Route: 048
     Dates: start: 20180620
  3. IMATINIB/IMATINIB MESILATE [Suspect]
     Active Substance: IMATINIB
     Indication: CHRONIC MYELOID LEUKAEMIA
     Dosage: IMITANIB 400 (0-1-0), SUSPENDED ON 06/ ?26/2018,REINTRODUCED AND SUSPENDED ON 7/3/2018
     Route: 048
     Dates: start: 20180620
  4. EXFORGE HCT [Concomitant]
     Active Substance: AMLODIPINE BESYLATE\HYDROCHLOROTHIAZIDE\VALSARTAN
  5. SIMVASTATIN. [Concomitant]
     Active Substance: SIMVASTATIN

REACTIONS (8)
  - Diarrhoea [Recovering/Resolving]
  - Tremor [Recovering/Resolving]
  - Oesophageal pain [Recovering/Resolving]
  - Oral pain [Recovering/Resolving]
  - Malaise [Recovering/Resolving]
  - Nausea [Recovering/Resolving]
  - Palpitations [Recovered/Resolved]
  - Gait disturbance [Recovering/Resolving]

NARRATIVE: CASE EVENT DATE: 201806
